FAERS Safety Report 9843345 (Version 1)
Quarter: 2013Q4

REPORT INFORMATION
  Report Type: Spontaneous
  Country: US (occurrence: None)
  Receive Date: 20131223
  Receipt Date: 20131223
  Transmission Date: 20140711
  Serious: No
  Sender: FDA-Public Use
  Company Number: 219190LEO

PATIENT
  Sex: Male

DRUGS (1)
  1. PICATO ( INGENOL MEBUTATE) (0.015 %) [Suspect]
     Indication: PRECANCEROUS CELLS PRESENT
     Dates: start: 201206

REACTIONS (5)
  - Drug ineffective [None]
  - Precancerous cells present [None]
  - Disease recurrence [None]
  - Drug administered at inappropriate site [None]
  - No adverse event [None]
